FAERS Safety Report 8841849 (Version 1)
Quarter: 2012Q4

REPORT INFORMATION
  Report Type: Spontaneous
  Country: US (occurrence: None)
  Receive Date: 20121015
  Receipt Date: 20121015
  Transmission Date: 20130627
  Serious: Yes (Other)
  Sender: FDA-Public Use
  Company Number: None

PATIENT
  Age: 57 Year
  Sex: Female
  Weight: 58.97 kg

DRUGS (2)
  1. BOTOX [Suspect]
     Dosage: in Medical file
     Dates: start: 201112
  2. BOTOX [Suspect]
     Dosage: In Medical file
     Dates: start: 201208

REACTIONS (11)
  - Oral pruritus [None]
  - Pharyngeal oedema [None]
  - Pharyngeal erythema [None]
  - Cough [None]
  - Dizziness [None]
  - Eyelid ptosis [None]
  - Wheezing [None]
  - Anaphylactic reaction [None]
  - Throat tightness [None]
  - Oropharyngeal pain [None]
  - Dysphagia [None]
